FAERS Safety Report 9029105 (Version 2)
Quarter: 2013Q1

REPORT INFORMATION
  Report Type: Spontaneous
  Country: FR (occurrence: FR)
  Receive Date: 20130114
  Receipt Date: 20130114
  Transmission Date: 20140127
  Serious: Yes (Hospitalization)
  Sender: FDA-Public Use
  Company Number: FR-PFIZER INC-HQWYE740623APR07

PATIENT
  Age: 86 Year
  Sex: Female

DRUGS (6)
  1. CORDARONE [Suspect]
     Dosage: 200 MG, FREQUENCY UNSPECIFIED
     Route: 048
     Dates: end: 20070111
  2. HEMIGOXINE NATIVELLE [Suspect]
     Dosage: 1 DF, DAILY
     Route: 048
     Dates: end: 20070131
  3. SERMION [Suspect]
     Dosage: 3 DF, 1X/DAILY
     Route: 048
     Dates: end: 20070130
  4. CARDENSIEL [Suspect]
     Dosage: 1.25 MG, DAILY
     Route: 048
     Dates: end: 20070203
  5. LASILIX [Concomitant]
     Dosage: UNK
     Route: 048
  6. LYSANXIA [Concomitant]
     Dosage: UNK
     Route: 048

REACTIONS (2)
  - Pulmonary fibrosis [Recovered/Resolved]
  - Aspergillus infection [Unknown]
